FAERS Safety Report 7574323-1 (Version None)
Quarter: 2011Q2

REPORT INFORMATION
  Report Type: 
  Country: None (occurrence: None)
  Receive Date: 20110627
  Receipt Date: 20110616
  Transmission Date: 20111010
  Serious: Yes (Hospitalization)
  Sender: FDA-Public Use
  Company Number: JP-MERCK-1106USA02848

PATIENT
  Age: 52 Year
  Sex: Female

DRUGS (4)
  1. AMARYL [Concomitant]
     Indication: DIABETES MELLITUS
     Dosage: THE DIVIDED DOSE FREQUENCY WAS UNCERTAIN
     Route: 048
     Dates: end: 20110531
  2. JANUVIA [Suspect]
     Indication: DIABETES MELLITUS
     Route: 048
     Dates: start: 20110601, end: 20110614
  3. METFORMIN HCL [Concomitant]
     Indication: DIABETES MELLITUS
     Dosage: THE DIVIDED DOSE FREQUENCY WAS UNCERTAIN
     Route: 048
  4. AMARYL [Concomitant]
     Dosage: THE DIVIDED DOSE FREQUENCY WAS UNCERTAIN
     Route: 048
     Dates: start: 20110601

REACTIONS (4)
  - HYPOAESTHESIA [None]
  - PARAESTHESIA [None]
  - GENERALISED OEDEMA [None]
  - WEIGHT INCREASED [None]
